FAERS Safety Report 6358948-7 (Version None)
Quarter: 2009Q3

REPORT INFORMATION
  Report Type: 
  Country: None (occurrence: None)
  Receive Date: 20090914
  Receipt Date: 20090903
  Transmission Date: 20100115
  Serious: Yes (Death)
  Sender: FDA-Public Use
  Company Number: GXKR2009DE09904

PATIENT
  Age: 23 Year
  Sex: Female

DRUGS (4)
  1. CODEINE PHOSPHATE (NGX) (CODEINE PHOSPHATE) UNKNOWN [Suspect]
  2. DOXEPIN HCL [Suspect]
     Dosage: ORAL
     Route: 048
  3. DIAZEPAM [Suspect]
  4. HEROIN (DIAMORPHINE) [Suspect]

REACTIONS (2)
  - DRUG INTERACTION [None]
  - DRUG TOXICITY [None]
